FAERS Safety Report 4973443-5 (Version None)
Quarter: 2006Q2

REPORT INFORMATION
  Report Type: 
  Country: None (occurrence: None)
  Receive Date: 20060413
  Receipt Date: 20060413
  Transmission Date: 20061013
  Serious: Yes (Death)
  Sender: FDA-Public Use
  Company Number: None

PATIENT
  Age: 48 Year
  Sex: Male
  Weight: 119.7496 kg

DRUGS (4)
  1. FENTANYL [Suspect]
     Indication: PAIN IN EXTREMITY
     Dosage: 25 MCG/HR   CONTINUOUS   CUTANEOUS
     Route: 003
  2. FENTANYL [Suspect]
  3. FENTANYL [Suspect]
  4. FENTANYL [Suspect]

REACTIONS (3)
  - FALL [None]
  - OVERDOSE [None]
  - PHARMACEUTICAL PRODUCT COMPLAINT [None]
